FAERS Safety Report 10463872 (Version 1)
Quarter: 2014Q3

REPORT INFORMATION
  Report Type: Report from Study
  Country: GB (occurrence: GB)
  Receive Date: 20140919
  Receipt Date: 20140919
  Transmission Date: 20150326
  Serious: Yes (Hospitalization)
  Sender: FDA-Public Use
  Company Number: GB-SA-2014SA124418

PATIENT
  Age: 19 Year
  Sex: Male

DRUGS (2)
  1. APROVEL [Suspect]
     Active Substance: IRBESARTAN
     Indication: MARFAN^S SYNDROME
     Route: 048
     Dates: start: 20131130, end: 20140609
  2. ATENOLOL. [Concomitant]
     Active Substance: ATENOLOL
     Dates: start: 20030101

REACTIONS (3)
  - Abdominal pain upper [Recovered/Resolved]
  - Chest discomfort [Recovered/Resolved]
  - Pancreatitis acute [Recovered/Resolved]

NARRATIVE: CASE EVENT DATE: 20140610
